FAERS Safety Report 6158905-X (Version None)
Quarter: 2009Q2

REPORT INFORMATION
  Report Type: 
  Country: None (occurrence: None)
  Receive Date: 20090407
  Receipt Date: 20090330
  Transmission Date: 20091009
  Serious: Yes (Death)
  Sender: FDA-Public Use
  Company Number: 200914799

PATIENT
  Sex: Female
  Weight: 55 kg

DRUGS (7)
  1. VIVAGLOBIN [Suspect]
     Indication: HYPOPROTEINAEMIA
     Dosage: SEE IMAGE
     Route: 058
     Dates: start: 20090217
  2. VIVAGLOBIN [Suspect]
     Indication: HYPOPROTEINAEMIA
     Dosage: SEE IMAGE
     Route: 058
     Dates: start: 20090218
  3. VIVAGLOBIN [Suspect]
     Indication: HYPOPROTEINAEMIA
     Dosage: SEE IMAGE
     Route: 058
     Dates: start: 20090225
  4. VIVAGLOBIN [Suspect]
     Indication: HYPOPROTEINAEMIA
     Dosage: SEE IMAGE
     Route: 058
     Dates: start: 20090303
  5. VIVAGLOBIN [Suspect]
  6. VIVAGLOBIN [Suspect]
  7. VIVAGLOBIN [Suspect]

REACTIONS (4)
  - ANAEMIA [None]
  - CARDIAC FAILURE [None]
  - CONFUSIONAL STATE [None]
  - GENERAL PHYSICAL HEALTH DETERIORATION [None]
